FAERS Safety Report 18204948 (Version 2)
Quarter: 2020Q3

REPORT INFORMATION
  Report Type: Report from Study
  Country: None (occurrence: US)
  Receive Date: 20200828
  Receipt Date: 20200829
  Transmission Date: 20201103
  Serious: Yes (Death, Hospitalization, Other)
  Sender: FDA-Public Use
  Company Number: US-ABBVIE-20K-163-3542110-00

PATIENT
  Age: 74 Year
  Sex: Male
  Weight: 69.92 kg

DRUGS (9)
  1. DUOPA [Suspect]
     Active Substance: CARBIDOPA\LEVODOPA
     Dosage: 100ML
     Route: 050
     Dates: start: 20190222
  2. MIRAPEX [Concomitant]
     Active Substance: PRAMIPEXOLE DIHYDROCHLORIDE
     Indication: PARKINSON^S DISEASE
  3. VITAMIN D3 [Concomitant]
     Active Substance: CHOLECALCIFEROL
     Indication: PRODUCT USED FOR UNKNOWN INDICATION
  4. LISINOPRIL. [Concomitant]
     Active Substance: LISINOPRIL
     Indication: HYPERTENSION
  5. DUOPA [Suspect]
     Active Substance: CARBIDOPA\LEVODOPA
     Indication: PRODUCT USED FOR UNKNOWN INDICATION
     Route: 050
     Dates: start: 20190207, end: 2019
  6. SINEMET [Concomitant]
     Active Substance: CARBIDOPA\LEVODOPA
     Indication: PARKINSON^S DISEASE
  7. PRESERVISIONPRESERVISIONPRESERVISIONPRESERVISIONLISINOPRILU [Concomitant]
     Indication: PRODUCT USED FOR UNKNOWN INDICATION
  8. MIRAPEX [Concomitant]
     Active Substance: PRAMIPEXOLE DIHYDROCHLORIDE
     Indication: RESTLESS LEGS SYNDROME
  9. LORAZEPAM. [Concomitant]
     Active Substance: LORAZEPAM
     Indication: ANXIETY

REACTIONS (11)
  - Death [Fatal]
  - Road traffic accident [Fatal]
  - Fall [Fatal]
  - Cervical vertebral fracture [Not Recovered/Not Resolved]
  - Traumatic haemorrhage [Unknown]
  - Muscular weakness [Not Recovered/Not Resolved]
  - Mobility decreased [Not Recovered/Not Resolved]
  - Cerebral haemorrhage [Fatal]
  - Intracranial pressure increased [Not Recovered/Not Resolved]
  - Brain oedema [Fatal]
  - Head injury [Fatal]

NARRATIVE: CASE EVENT DATE: 20200823
